FAERS Safety Report 5721821-9 (Version None)
Quarter: 2008Q2

REPORT INFORMATION
  Report Type: 
  Country: None (occurrence: None)
  Receive Date: 20080429
  Receipt Date: 20070510
  Transmission Date: 20081010
  Serious: No
  Sender: FDA-Public Use
  Company Number: US-ASTRAZENECA-2007UW11261

PATIENT
  Age: 65 Year
  Sex: Female
  Weight: 83.9 kg

DRUGS (7)
  1. NEXIUM [Suspect]
     Indication: PROPHYLAXIS
     Route: 048
  2. THEOPHYLLINE [Concomitant]
  3. SINGULAIR [Concomitant]
  4. SPIRONOLACTONE [Concomitant]
  5. SPIRIVA [Concomitant]
  6. ADVAIR HFA [Concomitant]
  7. FLONASE [Concomitant]

REACTIONS (3)
  - DIARRHOEA [None]
  - DYSPEPSIA [None]
  - MEDICATION RESIDUE [None]
